FAERS Safety Report 11520138 (Version 1)
Quarter: 2015Q3

REPORT INFORMATION
  Report Type: Spontaneous
  Country: US (occurrence: US)
  Receive Date: 20150918
  Receipt Date: 20150918
  Transmission Date: 20151125
  Serious: No
  Sender: FDA-Public Use
  Company Number: US-RB-072113-15

PATIENT

DRUGS (2)
  1. MUCINEX MAXIMUM STRENGTH [Suspect]
     Active Substance: GUAIFENESIN
     Indication: BRONCHITIS
     Dosage: 1200MG. TOOK PRODUCT LAST ON 13-DEC-2014.,BID
     Route: 065
     Dates: start: 20141213
  2. AMOXICILLIN. [Suspect]
     Active Substance: AMOXICILLIN
     Indication: BRONCHITIS
     Dosage: 500MG. ,FREQUENCY UNK
     Route: 065

REACTIONS (3)
  - Headache [Not Recovered/Not Resolved]
  - Product use issue [Not Recovered/Not Resolved]
  - Orthopnoea [Recovering/Resolving]

NARRATIVE: CASE EVENT DATE: 20141213
